FAERS Safety Report 18265795 (Version 3)
Quarter: 2020Q3

REPORT INFORMATION
  Report Type: Other
  Country: US (occurrence: US)
  Receive Date: 20200914
  Receipt Date: 20200920
  Transmission Date: 20201103
  Serious: Yes (Other)
  Sender: FDA-Public Use
  Company Number: US-ROCHE-2674004

PATIENT
  Age: 45 Year
  Sex: Female
  Weight: 88.98 kg

DRUGS (18)
  1. XELODA [Suspect]
     Active Substance: CAPECITABINE
     Indication: BREAST CANCER FEMALE
     Dosage: TAKE 3 TABLETS BY MOUTH EVERY MORNING AND TAKE 3 TABLET(S) BY MOUTH EVERY EVENING DAILY FOR 14 DAYS
     Route: 048
  2. ONDANSETRON HCL [Concomitant]
     Active Substance: ONDANSETRON HYDROCHLORIDE
     Indication: NAUSEA
     Dosage: 1 PILL BY MOUTH, AS NEEDED
     Route: 048
     Dates: start: 20161117
  3. LIDOCAINE. [Concomitant]
     Active Substance: LIDOCAINE
     Dosage: APPLY TO PORT DAY OF CHEMOTHERAPY
     Route: 061
     Dates: start: 20161117
  4. PROCHLORPERAZINE MALEATE. [Concomitant]
     Active Substance: PROCHLORPERAZINE MALEATE
     Indication: NAUSEA
     Dosage: 1 PILL BY MOUTH,AS NEEDED
     Route: 048
     Dates: start: 20161117
  5. HERCEPTIN [Suspect]
     Active Substance: TRASTUZUMAB
     Route: 042
     Dates: start: 20161201
  6. HERCEPTIN [Suspect]
     Active Substance: TRASTUZUMAB
     Indication: BREAST CANCER FEMALE
     Route: 042
     Dates: start: 20161201
  7. DIPHENHYDRAMINE HCL [Concomitant]
     Active Substance: DIPHENHYDRAMINE HYDROCHLORIDE
  8. OMEPRAZOLE. [Concomitant]
     Active Substance: OMEPRAZOLE
     Dosage: 1 PILL BY MOUTH
     Route: 048
     Dates: start: 20161117
  9. DEXAMETHASONE. [Concomitant]
     Active Substance: DEXAMETHASONE
     Dosage: TAKE 1 PILL MORNING BEFORE AND NIGHT BEFORE CHEMOTHERAPY
     Dates: start: 20161117
  10. CARBOPLATIN. [Concomitant]
     Active Substance: CARBOPLATIN
     Dates: start: 20161201
  11. PERJETA [Suspect]
     Active Substance: PERTUZUMAB
     Indication: BREAST CANCER FEMALE
     Route: 042
     Dates: start: 20161201
  12. DEXAMETHASONE SODIUM PHOSPHATE. [Concomitant]
     Active Substance: DEXAMETHASONE SODIUM PHOSPHATE
  13. VARUBI [Concomitant]
     Active Substance: ROLAPITANT
     Dosage: TAKE 2 TABLET BY MOUTH 1?2 HOURS PRIOR TO CHEMOTHERAPY AS DIRECTED
     Route: 048
     Dates: start: 20161117
  14. TAXOTERE [Concomitant]
     Active Substance: DOCETAXEL
     Dosage: 76 M/M2 IV.
     Route: 042
     Dates: start: 20161201
  15. HERCEPTIN [Suspect]
     Active Substance: TRASTUZUMAB
     Route: 042
     Dates: start: 20161201
  16. PERJETA [Suspect]
     Active Substance: PERTUZUMAB
     Route: 042
     Dates: start: 20161201
  17. KADCYLA [Suspect]
     Active Substance: ADO-TRASTUZUMAB EMTANSINE
     Indication: BREAST CANCER FEMALE
     Dosage: FOR 14 CYCLES
     Route: 042
  18. KADCYLA [Suspect]
     Active Substance: ADO-TRASTUZUMAB EMTANSINE
     Indication: AGRANULOCYTOSIS

REACTIONS (5)
  - Hair texture abnormal [Unknown]
  - Nausea [Unknown]
  - Dehydration [Unknown]
  - Vomiting [Unknown]
  - Recurrent cancer [Unknown]

NARRATIVE: CASE EVENT DATE: 20161202
